FAERS Safety Report 16784425 (Version 1)
Quarter: 2019Q3

REPORT INFORMATION
  Report Type: Spontaneous
  Country: CA (occurrence: CA)
  Receive Date: 20190909
  Receipt Date: 20190909
  Transmission Date: 20191005
  Serious: Yes (Other)
  Sender: FDA-Public Use
  Company Number: CA-ROCHE-2393799

PATIENT
  Age: 62 Year
  Sex: Female
  Weight: 68.1 kg

DRUGS (2)
  1. TAMIFLU [Suspect]
     Active Substance: OSELTAMIVIR PHOSPHATE
     Indication: GASTROENTERITIS NOROVIRUS
  2. TAMIFLU [Suspect]
     Active Substance: OSELTAMIVIR PHOSPHATE
     Indication: INFLUENZA
     Route: 048

REACTIONS (5)
  - Mouth ulceration [Recovering/Resolving]
  - Stevens-Johnson syndrome [Recovering/Resolving]
  - Pruritus [Recovering/Resolving]
  - Rash papular [Recovering/Resolving]
  - Nasal ulcer [Recovering/Resolving]
